FAERS Safety Report 18557453 (Version 1)
Quarter: 2020Q4

REPORT INFORMATION
  Report Type: Spontaneous
  Country: TW (occurrence: TW)
  Receive Date: 20201129
  Receipt Date: 20201129
  Transmission Date: 20210114
  Serious: Yes (Hospitalization)
  Sender: FDA-Public Use
  Company Number: TW-ROCHE-2721540

PATIENT
  Sex: Male

DRUGS (5)
  1. AZATHIOPRINE. [Concomitant]
     Active Substance: AZATHIOPRINE
     Indication: PEMPHIGUS
  2. METHYLPREDNISOLONE. [Concomitant]
     Active Substance: METHYLPREDNISOLONE
     Indication: PEMPHIGUS
     Dosage: 60-100 MG
  3. PREDNISOLONE. [Concomitant]
     Active Substance: PREDNISOLONE
     Indication: PEMPHIGUS
     Dosage: 20-40 MG
  4. PREDNISOLONE. [Concomitant]
     Active Substance: PREDNISOLONE
     Dosage: 50-60 MG
  5. MABTHERA [Suspect]
     Active Substance: RITUXIMAB
     Indication: PEMPHIGUS
     Route: 065

REACTIONS (2)
  - Pain in extremity [Unknown]
  - Peripheral swelling [Unknown]
